FAERS Safety Report 13801462 (Version 1)
Quarter: 2017Q3

REPORT INFORMATION
  Report Type: Spontaneous
  Country: US (occurrence: US)
  Receive Date: 20170727
  Receipt Date: 20170727
  Transmission Date: 20171127
  Serious: No
  Sender: FDA-Public Use
  Company Number: US-SEBELA IRELAND LIMITED-2017SEB00048

PATIENT
  Sex: Female

DRUGS (3)
  1. LETROZOLE. [Suspect]
     Active Substance: LETROZOLE
     Dosage: UNK
  2. BRISDELLE [Suspect]
     Active Substance: PAROXETINE MESYLATE
     Dosage: UNK
  3. BRISDELLE [Suspect]
     Active Substance: PAROXETINE MESYLATE
     Dosage: UNK

REACTIONS (2)
  - Night sweats [Unknown]
  - Fatigue [Unknown]
